FAERS Safety Report 6663817-9 (Version None)
Quarter: 2010Q2

REPORT INFORMATION
  Report Type: 
  Country: None (occurrence: None)
  Receive Date: 20100401
  Receipt Date: 20100322
  Transmission Date: 20101027
  Serious: Yes (Other)
  Sender: FDA-Public Use
  Company Number: US-JNJCH-2010007613

PATIENT
  Age: 60 Year
  Sex: Female
  Weight: 65.8 kg

DRUGS (2)
  1. ROGAINE [Suspect]
     Indication: ALOPECIA
     Dosage: TEXT:1ML 2X PER DAY
     Route: 061
     Dates: start: 20090815, end: 20091130
  2. ALL OTHER NON-THERAPEUTIC PRODUCTS [Suspect]
     Indication: DRUG USE FOR UNKNOWN INDICATION
     Dosage: TEXT:UNKNOWN
     Route: 061

REACTIONS (3)
  - ALOPECIA [None]
  - CAUSTIC INJURY [None]
  - WRONG TECHNIQUE IN DRUG USAGE PROCESS [None]
